FAERS Safety Report 23365938 (Version 2)
Quarter: 2024Q1

REPORT INFORMATION
  Report Type: Spontaneous
  Country: US (occurrence: US)
  Receive Date: 20240104
  Receipt Date: 20240112
  Transmission Date: 20240409
  Serious: Yes (Other)
  Sender: FDA-Public Use
  Company Number: US-IGSA-BIG0027084

PATIENT
  Age: 2 Week

DRUGS (5)
  1. VISTASEAL [Suspect]
     Active Substance: FIBRINOGEN HUMAN\HUMAN THROMBIN
     Indication: Ear, nose and throat examination
     Dosage: UNK
     Dates: start: 20231215, end: 20231215
  2. VISTASEAL [Suspect]
     Active Substance: FIBRINOGEN HUMAN\HUMAN THROMBIN
     Indication: Bronchoscopy
  3. VISTASEAL [Suspect]
     Active Substance: FIBRINOGEN HUMAN\HUMAN THROMBIN
     Indication: Intentional product use issue
  4. VISTASEAL [Suspect]
     Active Substance: FIBRINOGEN HUMAN\HUMAN THROMBIN
     Indication: Intentional product use issue
  5. VISTASEAL [Suspect]
     Active Substance: FIBRINOGEN HUMAN\HUMAN THROMBIN
     Indication: Intentional product use issue

REACTIONS (2)
  - Foreign body in respiratory tract [Recovered/Resolved]
  - Choking [Recovered/Resolved]

NARRATIVE: CASE EVENT DATE: 20231215
